FAERS Safety Report 10079927 (Version 1)
Quarter: 2014Q2

REPORT INFORMATION
  Report Type: Spontaneous
  Country: DE (occurrence: DE)
  Receive Date: 20140415
  Receipt Date: 20140415
  Transmission Date: 20141212
  Serious: Yes (Congenital Anomaly)
  Sender: FDA-Public Use
  Company Number: DE-WATSON-2013-25086

PATIENT
  Age: 9 Day
  Sex: Female
  Weight: 2.7 kg

DRUGS (2)
  1. LAMOTRIGINE (UNKNOWN) [Suspect]
     Indication: EPILEPSY
     Route: 064
     Dates: start: 20070330, end: 20071218
  2. THYRONAJOD [Concomitant]
     Indication: HYPOTHYROIDISM
     Route: 064
     Dates: start: 20070330, end: 20071218

REACTIONS (3)
  - Agitation [Recovered/Resolved]
  - Oxygen saturation decreased [Recovered/Resolved]
  - Apnoea neonatal [Recovered/Resolved]
